FAERS Safety Report 9102989 (Version 2)
Quarter: 2013Q2

REPORT INFORMATION
  Report Type: Spontaneous
  Country: IT (occurrence: IT)
  Receive Date: 20130218
  Receipt Date: 20130429
  Transmission Date: 20140414
  Serious: Yes (Other)
  Sender: FDA-Public Use
  Company Number: IT-TEVA-385888ISR

PATIENT
  Age: 29 Year
  Sex: Female

DRUGS (6)
  1. CARBOLITHIUM [Suspect]
     Dosage: 600 MILLIGRAM DAILY;
     Route: 048
     Dates: start: 20130121, end: 20130121
  2. CARBOLITHIUM [Suspect]
     Dosage: 1 TABLET AT LUNCH
  3. CARBOLITHIUM [Suspect]
     Dosage: 200 CAPSULES
  4. TOPAMAX [Suspect]
     Dosage: 1 TABLET ON SUNDAY
     Route: 048
     Dates: start: 20130121, end: 20130121
  5. EUTIROX [Suspect]
     Dosage: 50 TABLET DAILY;
     Route: 048
     Dates: start: 20130121, end: 20130121
  6. EUTIROX [Suspect]
     Dosage: 50 TABLETS
     Route: 048

REACTIONS (1)
  - Self injurious behaviour [Recovered/Resolved]
